FAERS Safety Report 13134195 (Version 2)
Quarter: 2017Q1

REPORT INFORMATION
  Report Type: Report from Study
  Country: IL (occurrence: IL)
  Receive Date: 20170120
  Receipt Date: 20170209
  Transmission Date: 20170428
  Serious: Yes (Other)
  Sender: FDA-Public Use
  Company Number: IL-TEVA-730347ACC

PATIENT
  Age: 73 Year
  Sex: Female

DRUGS (7)
  1. FAMPYRA [Concomitant]
     Active Substance: DALFAMPRIDINE
  2. ASPIRIN. [Concomitant]
     Active Substance: ASPIRIN
  3. GLUCOPHAGE [Concomitant]
     Active Substance: METFORMIN HYDROCHLORIDE
  4. COPAXONE [Suspect]
     Active Substance: GLATIRAMER ACETATE
     Indication: MULTIPLE SCLEROSIS
     Route: 058
     Dates: start: 20141201
  5. LIPITOR [Concomitant]
     Active Substance: ATORVASTATIN CALCIUM
  6. VITAMIN D [Concomitant]
     Active Substance: CHOLECALCIFEROL
  7. ELTROXIN [Concomitant]
     Active Substance: LEVOTHYROXINE

REACTIONS (2)
  - Pneumonia [Recovered/Resolved]
  - Erysipelas [Recovered/Resolved]

NARRATIVE: CASE EVENT DATE: 201607
